FAERS Safety Report 4527080-7 (Version None)
Quarter: 2004Q4

REPORT INFORMATION
  Report Type: 
  Country: None (occurrence: None)
  Receive Date: 20041129
  Receipt Date: 20040525
  Transmission Date: 20050328
  Serious: Yes (Death, Hospitalization)
  Sender: FDA-Public Use
  Company Number: USA040259216

PATIENT
  Age: 25 Year
  Sex: Female
  Weight: 49.8957 kg

DRUGS (7)
  1. PROZAC [Suspect]
     Indication: BIPOLAR I DISORDER
     Dosage: 20 MG/DAY
     Dates: end: 20030817
  2. ZYPREXA [Suspect]
     Dosage: 5 MG/DAY
     Dates: start: 20020314, end: 20030817
  3. SEROQUEL [Concomitant]
  4. TOPAMAX [Concomitant]
  5. PROTONIX [Concomitant]
  6. DEPO-PROVERA SUSPENSION/INJ [Concomitant]
  7. KLONOPIN [Concomitant]

REACTIONS (2)
  - DIABETIC KETOACIDOSIS [None]
  - WEIGHT INCREASED [None]
